FAERS Safety Report 4830030-7 (Version None)
Quarter: 2005Q4

REPORT INFORMATION
  Report Type: 
  Country: None (occurrence: None)
  Receive Date: 20051115
  Receipt Date: 20051115
  Transmission Date: 20060501
  Serious: Yes (Hospitalization)
  Sender: FDA-Public Use
  Company Number: None

PATIENT
  Age: 71 Year
  Sex: Male
  Weight: 71.6683 kg

DRUGS (24)
  1. FUROSEMIDE [Suspect]
     Indication: CARDIAC FAILURE CONGESTIVE
     Dosage: 80MG BID
     Dates: start: 20041209
  2. FUROSEMIDE [Suspect]
     Indication: OEDEMA
     Dosage: 80MG BID
     Dates: start: 20041209
  3. SYNTHROID [Concomitant]
  4. NITROGLYCERIN [Concomitant]
  5. METOPROLOL SUCCINATE [Concomitant]
  6. LISINOPRIL [Concomitant]
  7. OMEPRAZOLE [Concomitant]
  8. DOCUSATE NA [Concomitant]
  9. METHADONE HCL [Concomitant]
  10. OXYBUTYNIN CHLORIDE [Concomitant]
  11. SIMVASTATIN [Concomitant]
  12. LACTULOSE [Concomitant]
  13. OXYCODONE HCL/APAP [Concomitant]
  14. FINASTERIDE [Concomitant]
  15. ASPIRIN [Concomitant]
  16. LANOXIN [Concomitant]
  17. GLIPIZIDE [Concomitant]
  18. HYDRALAZINE HCL [Concomitant]
  19. HUMULIN N [Concomitant]
  20. ISOSORBIDE MONONITRATE [Concomitant]
  21. SPIRONOLACTONE [Concomitant]
  22. HYDROXYZINE PAMOATE [Concomitant]
  23. SULFAMETHOXAZOLE + TRIMETHOPRIM [Concomitant]
  24. PREDNISONE [Concomitant]

REACTIONS (4)
  - BLOOD CREATININE INCREASED [None]
  - BLOOD PRESSURE DECREASED [None]
  - HYPONATRAEMIA [None]
  - HYPOVOLAEMIA [None]
